FAERS Safety Report 7878839-X (Version None)
Quarter: 2011Q4

REPORT INFORMATION
  Report Type: 
  Country: None (occurrence: None)
  Receive Date: 20111101
  Receipt Date: 20111018
  Transmission Date: 20120403
  Serious: Yes (Hospitalization)
  Sender: FDA-Public Use
  Company Number: DE-COVIDIEN/TYCO HEALTHCARE/MALLINCKRODT-T201102287

PATIENT
  Age: 82 Year
  Sex: Male

DRUGS (1)
  1. EXALGO [Suspect]
     Indication: PAIN
     Dosage: 16 MG, UNK
     Route: 048

REACTIONS (2)
  - BRONCHIAL DISORDER [None]
  - DEPRESSED LEVEL OF CONSCIOUSNESS [None]
